FAERS Safety Report 5242131-2 (Version None)
Quarter: 2007Q1

REPORT INFORMATION
  Report Type: 
  Country: None (occurrence: None)
  Receive Date: 20070212
  Receipt Date: 20070131
  Transmission Date: 20070707
  Serious: Yes (Other)
  Sender: FDA-Public Use
  Company Number: OSCN-PR-0611S-0352

PATIENT
  Sex: Male

DRUGS (1)
  1. OMNISCAN [Suspect]
     Indication: RENAL TRANSPLANT
     Dosage: 0.08 MMOL/KG, SINGLE DOSE, I.V.; 0.27 MMOL/KG, SINGLE DOSE, I.V.

REACTIONS (1)
  - NEPHROGENIC FIBROSING DERMOPATHY [None]
